FAERS Safety Report 9318765 (Version 2)
Quarter: 2013Q2

REPORT INFORMATION
  Report Type: Spontaneous
  Country: IT (occurrence: None)
  Receive Date: 20130524
  Receipt Date: 20130612
  Transmission Date: 20140414
  Serious: Yes (Other)
  Sender: FDA-Public Use
  Company Number: 2013AP005386

PATIENT
  Age: 64 Year
  Sex: Male

DRUGS (9)
  1. ATORVASTATIN (ATORVASTATIN) [Suspect]
     Route: 048
     Dates: start: 20100101, end: 20130422
  2. ENALAPRIL [Suspect]
     Route: 048
     Dates: start: 20020101, end: 20130415
  3. CARDIOASPIRIN (ACETYLSALICYLIC ACID) [Concomitant]
  4. REPAGLINIDE (REPAGLINIDE) [Concomitant]
  5. FUROSEMIDE (FUROSEMIDE) [Concomitant]
  6. SPIRONOLACTON (SPIRONOLACTONE) [Concomitant]
  7. CARVEDILOL (CARVEDILOL) [Concomitant]
  8. ANTACAL (AMLODIPINE RESILATE) [Concomitant]
  9. RANITIDINE (RANITIDINE) [Concomitant]

REACTIONS (3)
  - Angioedema [None]
  - Pruritus generalised [None]
  - Drug interaction [None]
